FAERS Safety Report 8908208 (Version 1)
Quarter: 2012Q4

REPORT INFORMATION
  Report Type: 
  Country: US (occurrence: US)
  Receive Date: 20121113
  Receipt Date: 20121113
  Transmission Date: 20130627
  Serious: No
  Sender: FDA-Public Use
  Company Number: US-AMGEN-USASP2012043167

PATIENT
  Age: 75 Year
  Sex: Male
  Weight: 62.59 kg

DRUGS (14)
  1. ARANESP [Suspect]
     Indication: ANAEMIA
     Dosage: 500 mug, qmo
     Route: 058
     Dates: start: 20110131, end: 20120618
  2. LISINOPRIL [Concomitant]
     Dosage: 10 mg, qd
     Route: 048
  3. HYDROCHLOROTHIAZIDE [Concomitant]
  4. MORPHINE [Concomitant]
  5. SPIRIVA [Concomitant]
  6. FORTEO [Concomitant]
  7. SERTRALINE [Concomitant]
  8. XANAX [Concomitant]
  9. FLUTICASONE [Concomitant]
  10. IRON [Concomitant]
     Route: 048
  11. OXYCONTIN [Concomitant]
     Dosage: 20 mg, q12h
     Route: 048
  12. ROXANOL [Concomitant]
     Dosage: 60 mg, q4h
     Route: 048
  13. REGLAN                             /00041901/ [Concomitant]
     Dosage: 10 mg, ac
     Route: 048
  14. TESTOSTERONE [Concomitant]
     Dosage: 100 mg, q2wk
     Route: 030

REACTIONS (2)
  - Anaemia [Not Recovered/Not Resolved]
  - Reticulocyte count decreased [Not Recovered/Not Resolved]
